FAERS Safety Report 8346311-9 (Version None)
Quarter: 2012Q2

REPORT INFORMATION
  Report Type: 
  Country: None (occurrence: None)
  Receive Date: 20120509
  Receipt Date: 20110815
  Transmission Date: 20120825
  Serious: Yes (Other)
  Sender: FDA-Public Use
  Company Number: US-TEVA-2011002957

PATIENT
  Sex: Female
  Weight: 71.732 kg

DRUGS (8)
  1. BENADRYL [Concomitant]
  2. RITUXAN [Concomitant]
     Indication: NON-HODGKIN'S LYMPHOMA
     Route: 042
     Dates: start: 20110404, end: 20110621
  3. ARANESP [Concomitant]
  4. DECADRON [Concomitant]
  5. ZANTAC [Concomitant]
  6. ALOXI [Concomitant]
  7. TREANDA [Suspect]
     Indication: NON-HODGKIN'S LYMPHOMA
     Route: 042
     Dates: start: 20110404, end: 20110509
  8. TYLENOL (CAPLET) [Concomitant]

REACTIONS (1)
  - HYPERSENSITIVITY [None]
